FAERS Safety Report 6576926-X (Version None)
Quarter: 2010Q1

REPORT INFORMATION
  Report Type: 
  Country: None (occurrence: None)
  Receive Date: 20100210
  Receipt Date: 20100131
  Transmission Date: 20100710
  Serious: No
  Sender: FDA-Public Use
  Company Number: US-B.I. PHARMACEUTICALS,INC./RIDGEFIELD-2010-BP-01270BP

PATIENT
  Age: 73 Year
  Sex: Female

DRUGS (1)
  1. ZANTAC 150 [Suspect]
     Indication: GASTRIC PH DECREASED
     Dosage: 150 MG
     Route: 048
     Dates: start: 20100130

REACTIONS (2)
  - DIARRHOEA [None]
  - FEELING ABNORMAL [None]
